FAERS Safety Report 6170131-7 (Version None)
Quarter: 2009Q2

REPORT INFORMATION
  Report Type: 
  Country: None (occurrence: None)
  Receive Date: 20090428
  Receipt Date: 20090422
  Transmission Date: 20091009
  Serious: Yes (Hospitalization)
  Sender: FDA-Public Use
  Company Number: D0061316A

PATIENT
  Sex: Female
  Weight: 70 kg

DRUGS (7)
  1. ARIXTRA [Suspect]
     Indication: THROMBOPHLEBITIS
     Dosage: 7.5ML PER DAY
     Route: 065
     Dates: start: 20080919, end: 20080928
  2. CLEXANE [Suspect]
     Dosage: .6ML TWICE PER DAY
     Route: 065
     Dates: start: 20080929
  3. DOCETAXEL [Concomitant]
     Indication: BREAST CANCER
     Route: 065
  4. LISINOPRIL [Concomitant]
     Dosage: 5MG TWICE PER DAY
     Route: 065
  5. PANTOZOL [Concomitant]
     Dosage: 20MG TWICE PER DAY
     Route: 065
  6. MAALOXAN [Concomitant]
     Route: 048
  7. CYCLOPHOSPHAMIDE [Concomitant]
     Route: 065

REACTIONS (7)
  - DEEP VEIN THROMBOSIS [None]
  - DRUG INEFFECTIVE [None]
  - INFLAMMATION [None]
  - LEUKOPENIA [None]
  - LYMPHOEDEMA [None]
  - NECROSIS [None]
  - PULMONARY EMBOLISM [None]
